FAERS Safety Report 23958769 (Version 6)
Quarter: 2024Q4

REPORT INFORMATION
  Report Type: Spontaneous
  Country: US (occurrence: US)
  Receive Date: 20240610
  Receipt Date: 20241202
  Transmission Date: 20250114
  Serious: No
  Sender: ELI LILLY AND COMPANY
  Company Number: US-ELI_LILLY_AND_COMPANY-US202402009951

PATIENT
  Age: 46 Year
  Sex: Male

DRUGS (7)
  1. ADCIRCA [Suspect]
     Active Substance: TADALAFIL
     Indication: Pulmonary arterial hypertension
     Dosage: 40 MG, DAILY
     Route: 048
     Dates: start: 202212
  2. TYVASO DPI [Suspect]
     Active Substance: TREPROSTINIL
     Indication: Pulmonary arterial hypertension
     Dosage: 10 BREATHS, QID (STRENGTH: 0.6 MG/ML)
     Route: 055
     Dates: start: 202212
  3. TYVASO DPI [Suspect]
     Active Substance: TREPROSTINIL
     Dosage: 8 BREATHS, QID (STRENGTH: 0.6 MG/ML)
     Route: 055
     Dates: start: 202212
  4. TYVASO DPI [Suspect]
     Active Substance: TREPROSTINIL
     Dosage: 12 BREATHS, QID (STRENGTH: 0.6 MG/ML)
     Route: 055
     Dates: start: 202212
  5. TYVASO DPI [Suspect]
     Active Substance: TREPROSTINIL
     Dosage: 3 BREATHS, QID (STRENGTH: 0.6 MG/ML)
     Route: 055
     Dates: start: 202212
  6. OPSUMIT [Suspect]
     Active Substance: MACITENTAN
     Indication: Product used for unknown indication
     Dosage: UNK UNK, UNKNOWN
     Route: 065
  7. ICLUSIG [Suspect]
     Active Substance: PONATINIB HYDROCHLORIDE
     Indication: Product used for unknown indication
     Dosage: UNK UNK, UNKNOWN
     Route: 065

REACTIONS (17)
  - Memory impairment [Unknown]
  - Confusional state [Unknown]
  - General physical health deterioration [Unknown]
  - Tension headache [Unknown]
  - Tinnitus [Not Recovered/Not Resolved]
  - Insomnia [Unknown]
  - Dizziness [Recovering/Resolving]
  - Flushing [Unknown]
  - Abdominal discomfort [Unknown]
  - Hot flush [Unknown]
  - Headache [Unknown]
  - Head discomfort [Recovering/Resolving]
  - Accidental overdose [Unknown]
  - Chest pain [Unknown]
  - Dizziness [Unknown]
  - Hypotension [Unknown]
  - Sudden hearing loss [Unknown]

NARRATIVE: CASE EVENT DATE: 20240101
